FAERS Safety Report 7250390-X (Version None)
Quarter: 2011Q1

REPORT INFORMATION
  Report Type: 
  Country: None (occurrence: None)
  Receive Date: 20110128
  Receipt Date: 20110117
  Transmission Date: 20110831
  Serious: Yes (Other)
  Sender: FDA-Public Use
  Company Number: US-TYCO HEALTHCARE/MALLINCKRODT-T201100073

PATIENT
  Age: 54 Year
  Sex: Male

DRUGS (2)
  1. SODIUM CHLORIDE [Concomitant]
     Dosage: UNK, SINGLE
     Route: 042
     Dates: start: 20110114, end: 20110114
  2. OPTIRAY 320 [Suspect]
     Indication: ANGIOGRAM
     Dosage: UNK, SINGLE
     Route: 042
     Dates: start: 20110114, end: 20110114

REACTIONS (2)
  - AIR EMBOLISM [None]
  - DRUG ADMINISTRATION ERROR [None]
